FAERS Safety Report 18239861 (Version 2)
Quarter: 2020Q4

REPORT INFORMATION
  Report Type: Spontaneous
  Country: US (occurrence: US)
  Receive Date: 20200908
  Receipt Date: 20201021
  Transmission Date: 20210113
  Serious: Yes (Hospitalization)
  Sender: FDA-Public Use
  Company Number: US-GLOBAL BLOOD THERAPEUTICS INC-US-GBT-20-02474

PATIENT
  Age: 49 Year
  Sex: Female

DRUGS (3)
  1. OXBRYTA [Suspect]
     Active Substance: VOXELOTOR
     Indication: SICKLE CELL DISEASE
     Route: 048
     Dates: start: 20200729, end: 20200817
  2. JADENU [Concomitant]
     Active Substance: DEFERASIROX
     Indication: PRODUCT USED FOR UNKNOWN INDICATION
  3. FOLIC ACID. [Concomitant]
     Active Substance: FOLIC ACID
     Indication: PRODUCT USED FOR UNKNOWN INDICATION

REACTIONS (4)
  - Gastrointestinal disorder [Recovering/Resolving]
  - Therapy interrupted [Unknown]
  - Sickle cell anaemia with crisis [Recovering/Resolving]
  - Pneumonia [Not Recovered/Not Resolved]

NARRATIVE: CASE EVENT DATE: 2020
